FAERS Safety Report 9080648 (Version 1)
Quarter: 2013Q1

REPORT INFORMATION
  Report Type: Report from Study
  Country: US (occurrence: US)
  Receive Date: 20130130
  Receipt Date: 20130130
  Transmission Date: 20140127
  Serious: No
  Sender: FDA-Public Use
  Company Number: US-ABBOTT-12P-163-0973517-00

PATIENT
  Age: 48 Year
  Sex: Female

DRUGS (10)
  1. HUMIRA 40 MG/0.8 ML PEN [Suspect]
     Indication: RHEUMATOID ARTHRITIS
     Dates: start: 201206
  2. METHOTREXATE [Concomitant]
     Indication: RHEUMATOID ARTHRITIS
     Dosage: WEEKLY
  3. PLAQUENIL [Concomitant]
     Indication: RHEUMATOID ARTHRITIS
  4. MOBIC [Concomitant]
     Indication: INFLAMMATION
     Dosage: 15MG DAILY
  5. EFFEXOR [Concomitant]
     Indication: DEPRESSION
  6. FOLIC ACID [Concomitant]
     Indication: PRODUCT USED FOR UNKNOWN INDICATION
     Dosage: 1000MG DAILY
  7. LASIX [Concomitant]
     Indication: SWELLING
     Dosage: 40MG DAILY
  8. DILTIAZEM [Concomitant]
     Indication: MITRAL VALVE PROLAPSE
     Dosage: 120MG DAILY
  9. ESTRADIOL [Concomitant]
     Indication: HORMONE REPLACEMENT THERAPY
  10. FELODIPINE [Concomitant]
     Indication: PERIPHERAL COLDNESS
     Dosage: 2.5MG DAILY

REACTIONS (1)
  - Injection site pain [Recovered/Resolved]
